FAERS Safety Report 4448314-3 (Version None)
Quarter: 2004Q3

REPORT INFORMATION
  Report Type: 
  Country: None (occurrence: None)
  Receive Date: 20040913
  Receipt Date: 20040826
  Transmission Date: 20050211
  Serious: Yes (Hospitalization, Other)
  Sender: FDA-Public Use
  Company Number: 2004230585IE

PATIENT
  Sex: Male

DRUGS (1)
  1. ZYVOX [Suspect]
     Route: 065

REACTIONS (5)
  - APALLIC SYNDROME [None]
  - CONVULSION [None]
  - PNEUMONIA [None]
  - STAPHYLOCOCCAL INFECTION [None]
  - SUDDEN DEATH [None]
